FAERS Safety Report 6589810-2 (Version None)
Quarter: 2010Q1

REPORT INFORMATION
  Report Type: 
  Country: None (occurrence: None)
  Receive Date: 20100219
  Receipt Date: 20100201
  Transmission Date: 20100710
  Serious: No
  Sender: FDA-Public Use
  Company Number: US-JNJFOC-20100201460

PATIENT
  Sex: Female
  Weight: 74.84 kg

DRUGS (10)
  1. FENTANYL-100 [Suspect]
     Indication: SYSTEMIC LUPUS ERYTHEMATOSUS
     Route: 062
  2. FENTANYL-100 [Suspect]
     Route: 062
  3. FENTANYL-100 [Suspect]
     Indication: FIBROMYALGIA
     Route: 062
  4. FENTANYL-100 [Suspect]
     Route: 062
  5. OXYCODONE HCL [Concomitant]
     Indication: PAIN
     Route: 048
  6. ELAVIL [Concomitant]
     Indication: DEPRESSION
     Route: 048
  7. THYROID TAB [Concomitant]
     Indication: HYPOTHYROIDISM
     Route: 048
  8. PAXIL [Concomitant]
     Indication: DEPRESSION
     Route: 048
  9. WELLBUTRIN [Concomitant]
     Indication: DEPRESSION
     Route: 048
  10. NEURONTIN [Concomitant]
     Indication: PAIN
     Route: 048

REACTIONS (7)
  - APPLICATION SITE EROSION [None]
  - COLD SWEAT [None]
  - DISORIENTATION [None]
  - DRUG INEFFECTIVE [None]
  - DYSGEUSIA [None]
  - INCORRECT DRUG ADMINISTRATION DURATION [None]
  - WRONG TECHNIQUE IN DRUG USAGE PROCESS [None]
